FAERS Safety Report 14451541 (Version 1)
Quarter: 2018Q1

REPORT INFORMATION
  Report Type: Spontaneous
  Country: US (occurrence: US)
  Receive Date: 20180129
  Receipt Date: 20180129
  Transmission Date: 20180509
  Serious: Yes (Other)
  Sender: FDA-Public Use
  Company Number: US-ABBVIE-17K-163-2156189-00

PATIENT

DRUGS (2)
  1. HUMIRA [Suspect]
     Active Substance: ADALIMUMAB
     Indication: CROHN^S DISEASE
     Route: 058
     Dates: start: 2016
  2. REMICADE [Suspect]
     Active Substance: INFLIXIMAB
     Indication: CROHN^S DISEASE
     Route: 065

REACTIONS (8)
  - Inflammation [Unknown]
  - Dry skin [Unknown]
  - Erythema [Unknown]
  - Arthralgia [Unknown]
  - Skin exfoliation [Unknown]
  - Crohn^s disease [Unknown]
  - Lupus-like syndrome [Not Recovered/Not Resolved]
  - Drug specific antibody [Unknown]

NARRATIVE: CASE EVENT DATE: 201710
